FAERS Safety Report 7347437-9 (Version None)
Quarter: 2011Q1

REPORT INFORMATION
  Report Type: 
  Country: None (occurrence: None)
  Receive Date: 20110311
  Receipt Date: 20110228
  Transmission Date: 20110831
  Serious: Yes (Other)
  Sender: FDA-Public Use
  Company Number: PHEH2006US10885

PATIENT
  Sex: Female
  Weight: 51.247 kg

DRUGS (53)
  1. PREDNISONE TAB [Concomitant]
  2. CLINDAMYCIN HYDROCHLORIDE [Concomitant]
  3. DETROL                                  /USA/ [Concomitant]
  4. AMOXICILLIN [Concomitant]
  5. VENLAFAXINE HYDROCHLORIDE [Concomitant]
  6. PERIDEX [Concomitant]
  7. NYSTATIN [Concomitant]
  8. MEDROXYPROGESTERONE [Concomitant]
  9. ESTRADIOL + NORETHISTERONE ACETATE [Concomitant]
  10. MESNA [Concomitant]
  11. ZITHROMAX [Concomitant]
  12. CHLORHEXIDINE GLUCONATE [Concomitant]
  13. CLOBETASOL PROPIONATE [Concomitant]
  14. AVELOX [Concomitant]
  15. ACETAMINOPHEN W/ CODEINE [Concomitant]
  16. PERIOGARD [Concomitant]
  17. CYTOXAN [Concomitant]
  18. AREDIA [Suspect]
     Dosage: UNK
     Dates: end: 20030101
  19. DECADRON [Concomitant]
  20. INTERFERON [Concomitant]
  21. ACYCLOVIR [Concomitant]
  22. FOLATE SODIUM [Concomitant]
  23. PREMARIN [Concomitant]
  24. EFFEXOR XR [Concomitant]
  25. PROZAC [Concomitant]
  26. BENADRYL ^ACHE^ [Concomitant]
  27. EVISTA [Concomitant]
  28. PROVERA [Concomitant]
  29. ZOMETA [Suspect]
  30. CALCIUM [Concomitant]
  31. IRON [Concomitant]
  32. CELEXA [Concomitant]
  33. IMITREX ^GLAXO^ [Concomitant]
  34. AZITHROMYCIN [Concomitant]
  35. NASONEX [Concomitant]
  36. MACROBID [Concomitant]
  37. OXYCODONE HCL AND ACETAMINOPHEN [Concomitant]
  38. HYDROCORTISONE [Concomitant]
  39. PERCOCET [Concomitant]
  40. HORMONES [Concomitant]
  41. CIPROFLOXACIN [Concomitant]
  42. DIFLUNISAL [Concomitant]
  43. ACTIVELLA [Concomitant]
  44. CITALOPRAM [Concomitant]
  45. CLARITHROMYCIN [Concomitant]
  46. VINCRISTINE + ADRIAMYCIN + DEXAMETHASONE [Concomitant]
  47. PENLAC [Concomitant]
  48. LEVAQUIN [Concomitant]
  49. FEOGEN FA [Concomitant]
  50. POLYETHYLENE GLYCOL [Concomitant]
  51. ALLEGRA [Concomitant]
  52. ATIVAN [Concomitant]
  53. CYCLOPHOSPHAMIDE [Concomitant]

REACTIONS (39)
  - FEMUR FRACTURE [None]
  - IMPAIRED HEALING [None]
  - LOOSE TOOTH [None]
  - VISUAL IMPAIRMENT [None]
  - SINUSITIS [None]
  - HAEMATURIA [None]
  - PAROSMIA [None]
  - UPPER AIRWAY OBSTRUCTION [None]
  - COLONIC POLYP [None]
  - ANXIETY [None]
  - TOOTH DISORDER [None]
  - MOUTH HAEMORRHAGE [None]
  - DYSGEUSIA [None]
  - SENSITIVITY OF TEETH [None]
  - ORAL CAVITY FISTULA [None]
  - DECREASED INTEREST [None]
  - FOOT DEFORMITY [None]
  - HYPERKERATOSIS [None]
  - ENDOMETRIAL HYPERPLASIA [None]
  - OSTEOPOROSIS [None]
  - OSTEONECROSIS OF JAW [None]
  - PAIN [None]
  - OSTEOMYELITIS [None]
  - LIP SWELLING [None]
  - RHINITIS ALLERGIC [None]
  - GENERAL PHYSICAL HEALTH DETERIORATION [None]
  - POSTERIOR CAPSULE OPACIFICATION [None]
  - OSTEORADIONECROSIS [None]
  - SKIN PAPILLOMA [None]
  - SECONDARY SEQUESTRUM [None]
  - FALL [None]
  - PHOTOPSIA [None]
  - VISUAL ACUITY REDUCED [None]
  - HYPERTONIC BLADDER [None]
  - HAEMATOMA [None]
  - VITREOUS FLOATERS [None]
  - BONE DISORDER [None]
  - INFECTION [None]
  - ONYCHOMYCOSIS [None]
